FAERS Safety Report 6410848-X (Version None)
Quarter: 2009Q4

REPORT INFORMATION
  Report Type: 
  Country: None (occurrence: None)
  Receive Date: 20091022
  Receipt Date: 20091012
  Transmission Date: 20100525
  Serious: Yes (Disabling, Other)
  Sender: FDA-Public Use
  Company Number: PHHY2009NL40297

PATIENT
  Sex: Female
  Weight: 76 kg

DRUGS (10)
  1. TEGRETOL-XR [Suspect]
     Indication: EPILEPSY
     Dosage: 400 MG IN MORNING, 400 MG IN EVENING, 200 MG BEFORE NIGHT
     Route: 048
     Dates: start: 20090420, end: 20090915
  2. ASCAL [Concomitant]
     Dosage: 38 MG, QD
  3. POVIDONE IODINE [Concomitant]
     Dosage: 1 DRP, QID
  4. CHLORTHALIDONE [Concomitant]
     Dosage: 25 MG, QD
  5. ATENOLOL [Concomitant]
     Dosage: 100 MG, QD
  6. CARBAMAZEPINE [Concomitant]
     Dosage: 400 MG, BID
     Dates: end: 20090317
  7. CARBAMAZEPINE [Concomitant]
     Dosage: 200 MG, QD
  8. AMLODIPINE CF [Concomitant]
     Dosage: 5 MG, QD
  9. CRESTOR [Concomitant]
     Dosage: 5 MG, QD
  10. VIDISIC [Concomitant]
     Dosage: 1 DRP, QID

REACTIONS (4)
  - ANTICONVULSANT DRUG LEVEL INCREASED [None]
  - DIPLOPIA [None]
  - DIZZINESS [None]
  - VISION BLURRED [None]
